FAERS Safety Report 4583742-7 (Version None)
Quarter: 2005Q1

REPORT INFORMATION
  Report Type: 
  Country: None (occurrence: None)
  Receive Date: 20050216
  Receipt Date: 20050203
  Transmission Date: 20050727
  Serious: Yes (Other)
  Sender: FDA-Public Use
  Company Number: US-AMGEN-US108694

PATIENT
  Sex: Male
  Weight: 66.7 kg

DRUGS (6)
  1. ARANESP [Suspect]
     Indication: ANAEMIA
     Route: 058
     Dates: start: 20050112, end: 20050112
  2. PEGASYS [Concomitant]
     Route: 058
     Dates: start: 20041117
  3. RIBAVIRIN [Concomitant]
     Dates: start: 20041117
  4. GLIPIZIDE [Concomitant]
     Dates: start: 20040101
  5. IBUPROFEN [Concomitant]
     Dates: start: 20040101
  6. METFORMIN HCL [Concomitant]
     Dates: start: 20040101

REACTIONS (6)
  - EOSINOPHIL COUNT INCREASED [None]
  - HYPERSENSITIVITY [None]
  - OROPHARYNGEAL SWELLING [None]
  - RASH [None]
  - SWELLING FACE [None]
  - URTICARIA [None]
